FAERS Safety Report 8139488-1 (Version None)
Quarter: 2012Q1

REPORT INFORMATION
  Report Type: 
  Country: None (occurrence: None)
  Receive Date: 20120215
  Receipt Date: 20120209
  Transmission Date: 20120608
  Serious: Yes (Hospitalization, Other)
  Sender: FDA-Public Use
  Company Number: BR-ABBOTT-12P-020-0896947-00

PATIENT
  Sex: Male
  Weight: 94 kg

DRUGS (3)
  1. LEFLUNOMIDE [Concomitant]
     Indication: ARTHRITIS
     Route: 048
  2. HUMIRA [Suspect]
     Indication: RHEUMATOID ARTHRITIS
     Route: 058
  3. PREDNISONE TAB [Concomitant]
     Indication: ARTHRITIS
     Route: 048

REACTIONS (3)
  - FATIGUE [None]
  - CHEST PAIN [None]
  - INFARCTION [None]
